FAERS Safety Report 7489455-6 (Version None)
Quarter: 2011Q2

REPORT INFORMATION
  Report Type: 
  Country: None (occurrence: None)
  Receive Date: 20110518
  Receipt Date: 20110511
  Transmission Date: 20111010
  Serious: Yes (Hospitalization)
  Sender: FDA-Public Use
  Company Number: US-US-EMD SERONO, INC.-7044180

PATIENT
  Sex: Female
  Weight: 95 kg

DRUGS (7)
  1. XANAX [Concomitant]
  2. REBIF [Suspect]
     Route: 058
  3. BACLOFEN [Concomitant]
  4. TOPAMAX [Concomitant]
  5. LYRICA [Concomitant]
  6. ACETAMINOPHEN [Concomitant]
     Indication: PREMEDICATION
  7. REBIF [Suspect]
     Indication: MULTIPLE SCLEROSIS
     Route: 058
     Dates: start: 20110209

REACTIONS (8)
  - SEPSIS [None]
  - FALL [None]
  - STRESS [None]
  - URINARY TRACT INFECTION [None]
  - MULTIPLE SCLEROSIS [None]
  - FATIGUE [None]
  - TREATMENT FAILURE [None]
  - UPPER RESPIRATORY TRACT INFECTION [None]
